FAERS Safety Report 6328691-9 (Version None)
Quarter: 2009Q3

REPORT INFORMATION
  Report Type: 
  Country: None (occurrence: None)
  Receive Date: 20090826
  Receipt Date: 20090820
  Transmission Date: 20100115
  Serious: Yes (Other)
  Sender: FDA-Public Use
  Company Number: PHEH2009US09374

PATIENT
  Sex: Male

DRUGS (3)
  1. DIOVAN [Suspect]
     Dosage: 160 MG
     Dates: start: 20090301
  2. AMBIEN [Concomitant]
  3. XANAX [Concomitant]

REACTIONS (2)
  - HEPATITIS C [None]
  - HYPERTENSION [None]
